FAERS Safety Report 21544690 (Version 5)
Quarter: 2023Q2

REPORT INFORMATION
  Report Type: Other
  Country: None (occurrence: US)
  Receive Date: 20221102
  Receipt Date: 20230509
  Transmission Date: 20230722
  Serious: Yes (Death)
  Sender: FDA-Public Use
  Company Number: US-GenBioPro-2134440

PATIENT
  Age: 24 Year
  Sex: Female

DRUGS (2)
  1. MIFEPRISTONE [Suspect]
     Active Substance: MIFEPRISTONE
     Indication: Abortion induced
     Route: 048
     Dates: start: 20220922, end: 20220922
  2. MISOPROSTOL [Interacting]
     Active Substance: MISOPROSTOL
     Route: 067

REACTIONS (1)
  - Death [Fatal]

NARRATIVE: CASE EVENT DATE: 20220928
